FAERS Safety Report 5887334-9 (Version None)
Quarter: 2008Q3

REPORT INFORMATION
  Report Type: 
  Country: None (occurrence: None)
  Receive Date: 20080915
  Receipt Date: 20080905
  Transmission Date: 20090109
  Serious: Yes (Other)
  Sender: FDA-Public Use
  Company Number: 2008SP018547

PATIENT
  Age: 77 Year
  Sex: Female

DRUGS (10)
  1. MIRALAX [Suspect]
     Indication: CONSTIPATION
     Dosage: BID; PO
     Route: 048
     Dates: start: 20080901
  2. MIRALAX [Suspect]
     Indication: DRUG THERAPY
     Dosage: BID; PO
     Route: 048
     Dates: start: 20080901
  3. CRESTOR (CON.) [Concomitant]
  4. LISINOPRIL (CON.) [Concomitant]
  5. COUMADIN (CON.) [Concomitant]
  6. PLAVIX (CON.) [Concomitant]
  7. ASPIRIN (CON.) [Concomitant]
  8. MAXIDE (CON.) [Concomitant]
  9. NITRO (CON.) [Concomitant]
  10. SOTALOL (CON.) [Concomitant]

REACTIONS (2)
  - BLOOD PRESSURE INCREASED [None]
  - HEART RATE INCREASED [None]
